FAERS Safety Report 7916730-0 (Version None)
Quarter: 2011Q4

REPORT INFORMATION
  Report Type: 
  Country: None (occurrence: None)
  Receive Date: 20111114
  Receipt Date: 20111031
  Transmission Date: 20120403
  Serious: Yes (Other)
  Sender: FDA-Public Use
  Company Number: DSA_48147_2011

PATIENT
  Age: 72 Year
  Sex: Male

DRUGS (6)
  1. BISOPROLOL FUMARATE [Suspect]
     Indication: ATRIAL FIBRILLATION
     Dosage: (DF) (DF) (FREQUENCY UNKNOWN)
     Dates: start: 20090801, end: 20090912
  2. BISOPROLOL FUMARATE [Suspect]
     Indication: ATRIAL FIBRILLATION
     Dosage: (DF) (DF) (FREQUENCY UNKNOWN)
     Dates: start: 20060130, end: 20060208
  3. BISOPROLOL FUMARATE [Suspect]
     Indication: ATRIAL FIBRILLATION
     Dosage: (DF) (DF) (FREQUENCY UNKNOWN)
     Dates: start: 20060501, end: 20090801
  4. DILTIAZEM HYDROCHLORIDE [Suspect]
     Indication: ATRIAL FIBRILLATION
     Dosage: (120 MG 1X/12 HOURS)
     Dates: start: 20031101, end: 20060525
  5. DIGOXIN [Suspect]
     Indication: ATRIAL FIBRILLATION
     Dosage: (0.125 MG 2X/WEEK)
     Dates: start: 20050825, end: 20050901
  6. AMIODARONE HCL [Suspect]
     Indication: ATRIAL FIBRILLATION
     Dosage: (FREQUENCY UNKNOWN)
     Dates: start: 20060103, end: 20060130

REACTIONS (4)
  - BRADYCARDIA [None]
  - HYPOTHYROIDISM [None]
  - DRUG EFFECT DECREASED [None]
  - TOXICITY TO VARIOUS AGENTS [None]
